FAERS Safety Report 6819923-9 (Version None)
Quarter: 2010Q3

REPORT INFORMATION
  Report Type: 
  Country: None (occurrence: None)
  Receive Date: 20100707
  Receipt Date: 20100629
  Transmission Date: 20110219
  Serious: Yes (Hospitalization)
  Sender: FDA-Public Use
  Company Number: FR-JNJFOC-20100700251

PATIENT
  Age: 50 Year
  Sex: Male

DRUGS (5)
  1. REMICADE [Suspect]
     Indication: CROHN'S DISEASE
     Route: 042
  2. IMUREL [Suspect]
     Indication: CROHN'S DISEASE
     Route: 048
  3. INIPOMP [Concomitant]
     Indication: CROHN'S DISEASE
  4. PENTASA [Concomitant]
     Indication: CROHN'S DISEASE
  5. IDEOS [Concomitant]
     Indication: CROHN'S DISEASE
     Dosage: DOSE 500 MG/400 IU

REACTIONS (1)
  - HODGKIN'S DISEASE NODULAR SCLEROSIS STAGE UNSPECIFIED [None]
